FAERS Safety Report 6999566-7 (Version None)
Quarter: 2010Q3

REPORT INFORMATION
  Report Type: 
  Country: None (occurrence: None)
  Receive Date: 20100920
  Receipt Date: 20091027
  Transmission Date: 20110219
  Serious: Yes (Hospitalization, Other)
  Sender: FDA-Public Use
  Company Number: US-ASTRAZENECA-2007UW02400

PATIENT
  Age: 408 Month
  Sex: Female
  Weight: 95.7 kg

DRUGS (28)
  1. SEROQUEL [Suspect]
     Indication: SCHIZOAFFECTIVE DISORDER
     Dosage: 25-600 MG
     Route: 048
     Dates: start: 20050601
  2. SEROQUEL [Suspect]
     Route: 048
     Dates: start: 20050601
  3. SEROQUEL [Suspect]
     Route: 048
     Dates: start: 20051024
  4. SEROQUEL [Suspect]
     Route: 048
     Dates: start: 20051028
  5. SEROQUEL [Suspect]
     Route: 048
     Dates: start: 20051205
  6. SEROQUEL [Suspect]
     Dosage: 200 MG - 400 MG
     Route: 048
     Dates: start: 20060511
  7. SEROQUEL [Suspect]
     Dosage: 200MG, 3 TABLETS AT NIGHT
     Route: 048
     Dates: start: 20061208
  8. RISPERDAL [Suspect]
     Indication: SCHIZOAFFECTIVE DISORDER
     Dosage: DOSE-1 MG
     Route: 065
     Dates: start: 20050101, end: 20050301
  9. ZYPREXA [Suspect]
     Indication: MENTAL DISORDER
     Dosage: DOSE: 5 MG
     Dates: start: 20050201
  10. ZYPREXA [Suspect]
     Dates: start: 20050201, end: 20050212
  11. ABILIFY [Concomitant]
     Dosage: DOSE- 15 MG
     Dates: start: 20051005
  12. TRILAFON [Concomitant]
  13. TRILEPTAL [Concomitant]
     Dosage: DOSE 300 MG
     Dates: start: 20051005, end: 20061021
  14. DEPAKOTE [Concomitant]
     Dates: start: 20050215, end: 20050907
  15. HYDROCHLOROTHIAZIDE [Concomitant]
     Dates: start: 20050104
  16. MELLARIL [Concomitant]
     Dates: start: 20050301, end: 20050601
  17. PRILOSEC OTC [Concomitant]
     Dosage: EVERY MORNING
     Dates: start: 20051024
  18. KLONOPIN [Concomitant]
     Dates: start: 20051024
  19. KLONOPIN [Concomitant]
     Dates: start: 20061208
  20. PROTONIX [Concomitant]
     Route: 048
     Dates: start: 20050104
  21. ASPIRIN [Concomitant]
     Dates: start: 20051024
  22. LISINOPRIL [Concomitant]
     Route: 048
     Dates: start: 20060511
  23. ATENOLOL [Concomitant]
     Dosage: 50 MG 1/2 DAILY
     Route: 048
     Dates: start: 20060511
  24. ZOLOFT [Concomitant]
     Dosage: 200 MG - 400 MG
     Dates: start: 20060511
  25. LANTUS [Concomitant]
     Dosage: 12 UNITS AT NIGHT
     Route: 058
  26. LORTAB [Concomitant]
     Dosage: 7.5/500 MG FOUR TIMES A DAY
     Route: 048
     Dates: start: 20060620
  27. FLEXERIL [Concomitant]
     Route: 048
     Dates: start: 20060831
  28. NEURONTIN [Concomitant]
     Route: 048
     Dates: start: 20060928

REACTIONS (18)
  - ARTHRALGIA [None]
  - CHEST DISCOMFORT [None]
  - COUGH [None]
  - CUBITAL TUNNEL SYNDROME [None]
  - DIABETES MELLITUS INADEQUATE CONTROL [None]
  - DIZZINESS [None]
  - DYSLIPIDAEMIA [None]
  - DYSPNOEA [None]
  - GASTROOESOPHAGEAL REFLUX DISEASE [None]
  - HYPERLIPIDAEMIA [None]
  - HYPOAESTHESIA [None]
  - PALPITATIONS [None]
  - PATELLOFEMORAL PAIN SYNDROME [None]
  - PERIPHERAL NERVE LESION [None]
  - TACHYCARDIA [None]
  - TYPE 1 DIABETES MELLITUS [None]
  - UPPER RESPIRATORY TRACT INFECTION [None]
  - WEIGHT INCREASED [None]
